FAERS Safety Report 9736140 (Version 2)
Quarter: 2014Q2

REPORT INFORMATION
  Report Type: Report from Study
  Country: BE (occurrence: BE)
  Receive Date: 20131206
  Receipt Date: 20140606
  Transmission Date: 20141212
  Serious: Yes (Hospitalization)
  Sender: FDA-Public Use
  Company Number: BE-ROCHE-1309162

PATIENT
  Age: 75 Year
  Sex: Female

DRUGS (6)
  1. VEMURAFENIB [Suspect]
     Indication: METASTATIC MALIGNANT MELANOMA
     Dosage: DATE OF MOST RECENT DOSE PRIOR TO SAE 11/DEC/2013
     Route: 048
     Dates: start: 20131011
  2. EFEXOR [Concomitant]
     Indication: DEPRESSION
     Route: 048
     Dates: start: 20130830
  3. HYDROCORTISONE [Concomitant]
     Route: 048
     Dates: start: 20131004
  4. OMEPRAZOLE [Concomitant]
     Indication: ABDOMINAL PAIN UPPER
     Route: 048
  5. PARACODEINE [Concomitant]
     Indication: DYSPNOEA
     Route: 048
     Dates: start: 20131004
  6. DIFLUCAN [Concomitant]
     Route: 048
     Dates: start: 20131004, end: 20131102

REACTIONS (2)
  - Dyspnoea [Not Recovered/Not Resolved]
  - Anaemia [Recovered/Resolved]
